FAERS Safety Report 16134971 (Version 2)
Quarter: 2019Q4

REPORT INFORMATION
  Report Type: Spontaneous
  Country: PR (occurrence: US)
  Receive Date: 20190329
  Receipt Date: 20191217
  Transmission Date: 20200122
  Serious: Yes (Death, Hospitalization)
  Sender: FDA-Public Use
  Company Number: PR-JNJFOC-20190340906

PATIENT
  Age: 68 Year
  Sex: Male

DRUGS (1)
  1. XARELTO [Suspect]
     Active Substance: RIVAROXABAN
     Indication: PULMONARY EMBOLISM
     Route: 048

REACTIONS (3)
  - Gastrointestinal haemorrhage [Fatal]
  - Pulmonary hypertension [Fatal]
  - Intracardiac thrombus [Fatal]

NARRATIVE: CASE EVENT DATE: 201808
